FAERS Safety Report 9116775 (Version 1)
Quarter: 2013Q1

REPORT INFORMATION
  Report Type: Spontaneous
  Country: US (occurrence: US)
  Receive Date: 20130225
  Receipt Date: 20130225
  Transmission Date: 20140127
  Serious: No
  Sender: FDA-Public Use
  Company Number: US-009507513-1302USA011013

PATIENT
  Sex: Male

DRUGS (2)
  1. JANUVIA [Suspect]
     Indication: TYPE 2 DIABETES MELLITUS
     Dosage: 1 STANDARD PACKAGE BOTTLE OF 30
     Route: 048
  2. AMARYL [Concomitant]

REACTIONS (3)
  - Hyperglycaemia [Unknown]
  - Hypoglycaemia [Unknown]
  - Wrong technique in drug usage process [Unknown]
